FAERS Safety Report 8205985-3 (Version None)
Quarter: 2012Q1

REPORT INFORMATION
  Report Type: 
  Country: None (occurrence: None)
  Receive Date: 20120313
  Receipt Date: 20120306
  Transmission Date: 20120608
  Serious: Yes (Other)
  Sender: FDA-Public Use
  Company Number: US-US-EMD SERONO, INC.-7020775

PATIENT
  Sex: Female
  Weight: 59 kg

DRUGS (3)
  1. TYLENOL [Concomitant]
     Indication: PREMEDICATION
  2. REBIF [Suspect]
     Indication: MULTIPLE SCLEROSIS
     Route: 058
     Dates: start: 20060807
  3. BACLOFEN [Concomitant]
     Indication: MUSCLE SPASMS

REACTIONS (1)
  - BREAST CANCER IN SITU [None]
